FAERS Safety Report 9187882 (Version 1)
Quarter: 2013Q1

REPORT INFORMATION
  Report Type: Spontaneous
  Country: DK (occurrence: FR)
  Receive Date: 20130325
  Receipt Date: 20130325
  Transmission Date: 20140127
  Serious: Yes (Hospitalization)
  Sender: FDA-Public Use
  Company Number: FR-FRI-1000043687

PATIENT
  Age: 15 Year
  Sex: Female

DRUGS (6)
  1. ESCITALOPRAM [Suspect]
     Indication: DEPRESSION
     Dosage: 5 MG
     Route: 048
     Dates: start: 20121106, end: 20130129
  2. DEPAKINE [Interacting]
     Indication: AFFECTIVE DISORDER
     Dosage: 600 MG
     Route: 048
     Dates: start: 20121211, end: 20130111
  3. THERALENE [Interacting]
     Indication: INSOMNIA
     Dosage: 5 MG
     Route: 048
     Dates: start: 20130104, end: 20130114
  4. TERCIAN [Interacting]
     Indication: ANXIETY
     Dosage: 25 MG
     Route: 048
     Dates: start: 20130104, end: 20130111
  5. ATARAX [Concomitant]
     Indication: ANXIETY
     Dosage: 25 MG
     Route: 048
     Dates: start: 20130114
  6. XANAX [Concomitant]
     Indication: ANXIETY
     Dosage: 0.25 MG
     Route: 048
     Dates: start: 20121116, end: 20121231

REACTIONS (3)
  - Bicytopenia [Recovered/Resolved]
  - Labelled drug-drug interaction medication error [Recovered/Resolved]
  - Off label use [Recovered/Resolved]
